FAERS Safety Report 8854244 (Version 1)
Quarter: 2012Q4

REPORT INFORMATION
  Report Type: Spontaneous
  Country: US (occurrence: None)
  Receive Date: 20121022
  Receipt Date: 20121022
  Transmission Date: 20130627
  Serious: No
  Sender: FDA-Public Use
  Company Number: None

PATIENT
  Age: 61 Year
  Sex: Male
  Weight: 76.3 kg

DRUGS (2)
  1. MORPHINE [Suspect]
     Indication: PAIN
     Route: 048
     Dates: start: 20121014, end: 20121017
  2. OXYCODONE [Suspect]
     Route: 048
     Dates: start: 20121014, end: 20121017

REACTIONS (4)
  - Accidental overdose [None]
  - Depressed level of consciousness [None]
  - Sedation [None]
  - Respiratory depression [None]
